FAERS Safety Report 5609274-2 (Version None)
Quarter: 2008Q1

REPORT INFORMATION
  Report Type: 
  Country: None (occurrence: None)
  Receive Date: 20080131
  Receipt Date: 20080124
  Transmission Date: 20080703
  Serious: Yes (Hospitalization)
  Sender: FDA-Public Use
  Company Number: US-JNJFOC-20080106067

PATIENT
  Age: 42 Year
  Sex: Female
  Weight: 78.93 kg

DRUGS (10)
  1. RISPERDAL CONSTA [Suspect]
     Indication: SCHIZOPHRENIA
     Route: 030
  2. PAXIL [Concomitant]
  3. HYDROCHLOROTHIAZIDE [Concomitant]
  4. LEVOTHYROXINE SODIUM [Concomitant]
  5. ORTHO TRI-CYCLEN [Concomitant]
  6. DEPAKOTE [Concomitant]
  7. RESTORIL [Concomitant]
  8. ATIVAN [Concomitant]
  9. RISPERDAL [Concomitant]
  10. RISPERDAL [Concomitant]

REACTIONS (2)
  - SCHIZOPHRENIA [None]
  - SUICIDAL IDEATION [None]
